FAERS Safety Report 8400878-0 (Version None)
Quarter: 2012Q2

REPORT INFORMATION
  Report Type: 
  Country: None (occurrence: None)
  Receive Date: 20120601
  Receipt Date: 20080522
  Transmission Date: 20120825
  Serious: Yes (Death, Hospitalization, Other)
  Sender: FDA-Public Use
  Company Number: JP-BRISTOL-MYERS SQUIBB COMPANY-14173728

PATIENT
  Age: 34 Year
  Sex: Female

DRUGS (5)
  1. AKINETON [Concomitant]
     Dates: start: 20071028, end: 20071028
  2. ABILIFY [Suspect]
     Indication: SCHIZOPHRENIA
     Route: 048
     Dates: start: 20071010, end: 20071028
  3. HALOPERIDOL [Suspect]
  4. ETILEFRINE HCL [Concomitant]
  5. LEVOTOMIN [Concomitant]
     Route: 048
     Dates: end: 20071028

REACTIONS (5)
  - ARRHYTHMIA [None]
  - INSOMNIA [None]
  - HALLUCINATION [None]
  - DELUSION [None]
  - PSYCHOMOTOR HYPERACTIVITY [None]
